FAERS Safety Report 20363830 (Version 1)
Quarter: 2022Q1

REPORT INFORMATION
  Report Type: Spontaneous
  Country: US (occurrence: US)
  Receive Date: 20220121
  Receipt Date: 20220121
  Transmission Date: 20220424
  Serious: Yes (Other)
  Sender: FDA-Public Use
  Company Number: US-SAGENT PHARMACEUTICALS-2022SAG000057

PATIENT

DRUGS (5)
  1. FLUOROURACIL [Suspect]
     Active Substance: FLUOROURACIL
     Indication: Neoplasm
     Dosage: 2400 MG/M2, CONTINUOUS INFUSION  DAY 1 AND DAY 15
     Route: 042
  2. FLUOROURACIL [Suspect]
     Active Substance: FLUOROURACIL
     Dosage: 400 MG/M2, BOLUS DAY 1 AND DAY 15
     Route: 042
  3. LEUCOVORIN CALCIUM [Suspect]
     Active Substance: LEUCOVORIN CALCIUM
     Indication: Neoplasm
     Dosage: 400 MG/M2, ON DAY 1 AND DAY 15
     Route: 042
  4. IRINOTECAN [Suspect]
     Active Substance: IRINOTECAN
     Indication: Neoplasm
     Dosage: 180 MG/M2, DAY 1 AND DAY 15
     Route: 042
  5. SELINEXOR [Suspect]
     Active Substance: SELINEXOR
     Indication: Neoplasm
     Dosage: 40 MG, QWEEK
     Route: 042

REACTIONS (1)
  - Febrile neutropenia [Unknown]
